FAERS Safety Report 5958146-2 (Version None)
Quarter: 2008Q4

REPORT INFORMATION
  Report Type: 
  Country: None (occurrence: None)
  Receive Date: 20081117
  Receipt Date: 20081023
  Transmission Date: 20090506
  Serious: No
  Sender: FDA-Public Use
  Company Number: 0810-SPO-SPLN-0096

PATIENT
  Age: 8 Year
  Sex: Female

DRUGS (2)
  1. SUPPRELIN LA [Suspect]
     Indication: PRECOCIOUS PUBERTY
     Dosage: 50 MG, 1 IN 1 Y, SUB Q. IMPLANT
     Route: 058
     Dates: start: 20071109
  2. UNSPECIFIED SEIZURE MEDICATION [Concomitant]

REACTIONS (3)
  - ASTROCYTOMA [None]
  - CONVULSION [None]
  - NEOPLASM RECURRENCE [None]
